FAERS Safety Report 16813455 (Version 1)
Quarter: 2019Q3

REPORT INFORMATION
  Report Type: Report from Study
  Country: None (occurrence: US)
  Receive Date: 20190917
  Receipt Date: 20190917
  Transmission Date: 20191005
  Serious: Yes (Other)
  Sender: FDA-Public Use
  Company Number: US-ABBVIE-19K-163-2923971-00

PATIENT
  Age: 66 Year
  Sex: Male

DRUGS (1)
  1. CREON [Suspect]
     Active Substance: PANCRELIPASE AMYLASE\PANCRELIPASE LIPASE\PANCRELIPASE PROTEASE
     Indication: PRODUCT USED FOR UNKNOWN INDICATION
     Route: 048

REACTIONS (6)
  - Limb operation [Unknown]
  - Central venous catheterisation [Unknown]
  - Catheterisation venous [Unknown]
  - Adverse event [Unknown]
  - Endoscopic retrograde cholangiopancreatography [Unknown]
  - Appendicectomy [Unknown]

NARRATIVE: CASE EVENT DATE: 20190530
